FAERS Safety Report 6839787-7 (Version None)
Quarter: 2010Q3

REPORT INFORMATION
  Report Type: 
  Country: None (occurrence: None)
  Receive Date: 20100714
  Receipt Date: 20100714
  Transmission Date: 20110219
  Serious: Yes (Other)
  Sender: FDA-Public Use
  Company Number: None

PATIENT
  Sex: Female

DRUGS (1)
  1. CHILDREN'S BENADRYL ALLERGY [Suspect]
     Indication: RASH
     Dosage: 6.25MG X 1 PO
     Route: 048
     Dates: start: 20100318

REACTIONS (3)
  - HYPOTONIA [None]
  - PRODUCT QUALITY ISSUE [None]
  - RASH [None]
